FAERS Safety Report 9858387 (Version 1)
Quarter: 2014Q1

REPORT INFORMATION
  Report Type: Spontaneous
  Country: GB (occurrence: GB)
  Receive Date: 20140131
  Receipt Date: 20140131
  Transmission Date: 20141002
  Serious: Yes (Hospitalization, Other)
  Sender: FDA-Public Use
  Company Number: GB-GALDERMA-GB14000386

PATIENT
  Age: 17 Year
  Sex: Female
  Weight: 48.98 kg

DRUGS (1)
  1. EPIDUO [Suspect]
     Indication: ACNE
     Dosage: 0.1%-2.5%
     Route: 061
     Dates: start: 20140114, end: 20140116

REACTIONS (8)
  - Chemical burn of skin [Not Recovered/Not Resolved]
  - Headache [Unknown]
  - Vomiting [Unknown]
  - Skin warm [Unknown]
  - Facial pain [Unknown]
  - Swelling face [Not Recovered/Not Resolved]
  - Pruritus [Unknown]
  - Erythema [Unknown]
